FAERS Safety Report 25741844 (Version 1)
Quarter: 2025Q3

REPORT INFORMATION
  Report Type: Report from Study
  Country: US (occurrence: US)
  Receive Date: 20250829
  Receipt Date: 20250829
  Transmission Date: 20251020
  Serious: Yes (Hospitalization, Other)
  Sender: ALEXION PHARMACEUTICALS
  Company Number: US-AstraZeneca-CH-00910609A

PATIENT
  Age: 80 Year
  Sex: Female
  Weight: 59.42 kg

DRUGS (7)
  1. ACALABRUTINIB [Suspect]
     Active Substance: ACALABRUTINIB
     Indication: Chronic lymphocytic leukaemia
     Dosage: 100 MILLIGRAM, BID
     Dates: start: 20241114
  2. CEFDINIR [Concomitant]
     Active Substance: CEFDINIR
     Route: 065
  3. METRONIDAZOLE [Concomitant]
     Active Substance: METRONIDAZOLE
     Route: 065
  4. ONDANSETRON [Concomitant]
     Active Substance: ONDANSETRON
     Route: 065
  5. AMIODARONE [Concomitant]
     Active Substance: AMIODARONE
     Route: 065
  6. RIVAROXABAN [Concomitant]
     Active Substance: RIVAROXABAN
     Route: 065
  7. NICOTINE [Concomitant]
     Active Substance: NICOTINE
     Route: 065

REACTIONS (36)
  - Colitis [Recovering/Resolving]
  - Abdominal pain lower [Unknown]
  - Intestinal perforation [Unknown]
  - Diarrhoea [Unknown]
  - Asthenia [Unknown]
  - Appetite disorder [Unknown]
  - Inflammatory bowel disease [Unknown]
  - Red blood cell count decreased [Unknown]
  - Haemoglobin decreased [Unknown]
  - Blood chloride increased [Unknown]
  - Protein total decreased [Unknown]
  - Glomerular filtration rate decreased [Unknown]
  - International normalised ratio increased [Unknown]
  - Activated partial thromboplastin time shortened [Unknown]
  - Blood immunoglobulin G [Unknown]
  - Carbon dioxide [Unknown]
  - Blood creatinine increased [Unknown]
  - Blood glucose increased [Unknown]
  - Blood creatinine increased [Unknown]
  - Blood urea increased [Unknown]
  - Haematocrit decreased [Unknown]
  - Mean cell haemoglobin increased [Unknown]
  - Red cell distribution width increased [Unknown]
  - Neutrophil count increased [Unknown]
  - Lymphocyte count decreased [Unknown]
  - Eosinophil count [Unknown]
  - Granulocyte count increased [Unknown]
  - Diverticulitis [Unknown]
  - Constipation [Unknown]
  - Ileus [Unknown]
  - Nausea [Unknown]
  - Hepatomegaly [Unknown]
  - Oedema [Unknown]
  - Urinary tract infection [Unknown]
  - Gastrointestinal pain [Unknown]
  - Gastroenteritis [Unknown]

NARRATIVE: CASE EVENT DATE: 20250627
